FAERS Safety Report 7700124-7 (Version None)
Quarter: 2011Q3

REPORT INFORMATION
  Report Type: 
  Country: None (occurrence: None)
  Receive Date: 20110822
  Receipt Date: 20110818
  Transmission Date: 20111222
  Serious: No
  Sender: FDA-Public Use
  Company Number: US-PFIZER INC-2011040295

PATIENT
  Sex: Female
  Weight: 47.62 kg

DRUGS (4)
  1. CHANTIX [Suspect]
     Dosage: 1 MG, 2X/DAY
     Route: 048
     Dates: start: 20090101, end: 20090101
  2. CHANTIX [Suspect]
     Indication: SMOKING CESSATION THERAPY
     Dosage: 0.5 MG, DAILY
     Route: 048
     Dates: start: 20091001, end: 20090101
  3. CHANTIX [Suspect]
     Dosage: SPLITTING 1 MG TABLET IN HALF, 1X/DAY
     Route: 048
     Dates: start: 20090101
  4. THEOPHYLLINE [Concomitant]
     Indication: ASTHMA
     Dosage: 300 MG, 2X/DAY
     Route: 048

REACTIONS (1)
  - ABNORMAL DREAMS [None]
